FAERS Safety Report 9677521 (Version 1)
Quarter: 2013Q4

REPORT INFORMATION
  Report Type: Spontaneous
  Country: FR (occurrence: FR)
  Receive Date: 20131108
  Receipt Date: 20131108
  Transmission Date: 20140711
  Serious: Yes (Hospitalization)
  Sender: FDA-Public Use
  Company Number: PHHY2013FR126075

PATIENT
  Age: 81 Year
  Sex: Male

DRUGS (12)
  1. ACLASTA [Suspect]
     Indication: OSTEOPOROSIS
     Dosage: UNK
     Route: 042
     Dates: start: 20130813
  2. CRESTOR [Suspect]
     Dosage: 10 MG, QD
     Route: 048
     Dates: end: 20130823
  3. BISOPROLOL [Concomitant]
     Dosage: UNK
  4. KARDEGIC [Concomitant]
     Dosage: UNK
  5. TARDYFERON [Concomitant]
     Dosage: UNK
  6. TRIATEC [Concomitant]
     Dosage: UNK
  7. SPECIAFOLDINE [Concomitant]
     Dosage: UNK
  8. GLUCOR [Concomitant]
     Dosage: UNK
  9. TEMESTA [Concomitant]
     Dosage: UNK
  10. INEXIUM [Concomitant]
     Dosage: UNK
  11. OXYCONTIN [Concomitant]
     Dosage: UNK
  12. OXYNORMORO [Concomitant]
     Dosage: UNK

REACTIONS (2)
  - Renal failure acute [Recovered/Resolved]
  - Cholestasis [Recovered/Resolved]
